FAERS Safety Report 6046108-9 (Version None)
Quarter: 2009Q1

REPORT INFORMATION
  Report Type: 
  Country: None (occurrence: None)
  Receive Date: 20090121
  Receipt Date: 20090121
  Transmission Date: 20090719
  Serious: Yes (Other)
  Sender: FDA-Public Use
  Company Number: None

PATIENT
  Sex: Female
  Weight: 68.9467 kg

DRUGS (1)
  1. CICLOPIROX [Suspect]
     Indication: ONYCHOMYCOSIS
     Dosage: APPLY TO NAIL DAILY TOPICALLY
     Route: 061
     Dates: end: 20070401

REACTIONS (2)
  - NAIL DISCOLOURATION [None]
  - PRODUCT QUALITY ISSUE [None]
